FAERS Safety Report 25934170 (Version 1)
Quarter: 2025Q4

REPORT INFORMATION
  Report Type: Spontaneous
  Country: US (occurrence: US)
  Receive Date: 20251017
  Receipt Date: 20251017
  Transmission Date: 20260118
  Serious: No
  Sender: ABBVIE
  Company Number: US-ABBVIE-6497041

PATIENT

DRUGS (4)
  1. BOTOX [Suspect]
     Active Substance: ONABOTULINUMTOXINA
     Indication: Product used for unknown indication
     Dosage: TIME INTERVAL: AS NECESSARY: THERAPEUTIC
     Route: 065
     Dates: start: 2005, end: 2005
  2. BOTOX [Suspect]
     Active Substance: ONABOTULINUMTOXINA
     Indication: Product used for unknown indication
     Dosage: TIME INTERVAL: AS NECESSARY: THERAPEUTIC, LAST BOTOX  INJECTION WAS IN JUNE OR JULY 2025, 250 UNITS
     Route: 065
     Dates: start: 202506, end: 202506
  3. BOTOX [Suspect]
     Active Substance: ONABOTULINUMTOXINA
     Indication: Product used for unknown indication
     Dosage: TIME INTERVAL: AS NECESSARY: THERAPEUTIC, 120 UNITS
     Route: 065
     Dates: start: 20251007, end: 20251007
  4. BOTOX [Suspect]
     Active Substance: ONABOTULINUMTOXINA
     Indication: Product used for unknown indication
     Dosage: TIME INTERVAL: AS NECESSARY: THERAPEUTIC, 120 UNITS
     Route: 065
     Dates: start: 20251007, end: 20251007

REACTIONS (8)
  - Off label use [Unknown]
  - Vomiting [Unknown]
  - Mastication disorder [Unknown]
  - Urinary tract infection [Unknown]
  - Headache [Unknown]
  - Trismus [Unknown]
  - Injection site pain [Unknown]
  - Nausea [Unknown]

NARRATIVE: CASE EVENT DATE: 20250101
